FAERS Safety Report 4613702-9 (Version None)
Quarter: 2005Q1

REPORT INFORMATION
  Report Type: 
  Country: None (occurrence: None)
  Receive Date: 20050318
  Receipt Date: 20050318
  Transmission Date: 20050727
  Serious: Yes (Hospitalization)
  Sender: FDA-Public Use
  Company Number: None

PATIENT
  Age: 55 Year
  Sex: Male
  Weight: 83.4619 kg

DRUGS (1)
  1. DIAZEPAM [Suspect]
     Dosage: DOSE UNKNOWN AS PATIENT OBTAINED ILLEGALLY

REACTIONS (3)
  - ALCOHOLISM [None]
  - DELIRIUM [None]
  - DRUG ABUSER [None]
